FAERS Safety Report 8805154 (Version 2)
Quarter: 2012Q4

REPORT INFORMATION
  Report Type: 
  Country: SE (occurrence: SE)
  Receive Date: 20120924
  Receipt Date: 20121001
  Transmission Date: 20130627
  Serious: Yes (Life-Threatening, Other)
  Sender: FDA-Public Use
  Company Number: SE-ROCHE-1107287

PATIENT
  Age: 60 Year
  Sex: Female

DRUGS (2)
  1. MABTHERA [Suspect]
     Indication: RHEUMATOID ARTHRITIS
     Dosage: 1 mgn
     Route: 042
     Dates: start: 20110316, end: 20120809
  2. METHOTREXATE [Suspect]
     Indication: RHEUMATOID ARTHRITIS
     Dosage: 2-5mg
     Route: 048
     Dates: start: 20080101, end: 20120809

REACTIONS (2)
  - Agranulocytosis [Recovered/Resolved]
  - Chronic lymphocytic leukaemia [Unknown]
